FAERS Safety Report 9277299 (Version 3)
Quarter: 2014Q2

REPORT INFORMATION
  Report Type: Spontaneous
  Country: IT (occurrence: IT)
  Receive Date: 20130508
  Receipt Date: 20140528
  Transmission Date: 20141212
  Serious: Yes (Hospitalization)
  Sender: FDA-Public Use
  Company Number: IT-RANBAXY-2013R1-68578

PATIENT
  Age: 43 Year
  Sex: Male

DRUGS (1)
  1. AMOXICILLIN [Suspect]
     Indication: PHARYNGITIS
     Dosage: 500MG, DAILY
     Route: 065
     Dates: start: 20121105, end: 20121109

REACTIONS (1)
  - Hypersensitivity [Recovering/Resolving]
